FAERS Safety Report 7520272-4 (Version None)
Quarter: 2011Q2

REPORT INFORMATION
  Report Type: 
  Country: None (occurrence: None)
  Receive Date: 20110602
  Receipt Date: 20110523
  Transmission Date: 20111010
  Serious: Yes (Other)
  Sender: FDA-Public Use
  Company Number: IT-BAYER-2011-046445

PATIENT
  Age: 88 Year
  Sex: Male

DRUGS (7)
  1. GLIMEPIRIDE-METFORMIN-PIOGLITAZONE [Suspect]
  2. METFORMIN HCL [Concomitant]
  3. ATORVASTATIN [Concomitant]
  4. RAMIPRIL [Concomitant]
  5. EZETIMIBE [Concomitant]
  6. GLICLAZIDE [Suspect]
     Indication: DIABETES MELLITUS
  7. GLUCOBAY [Suspect]
     Indication: DIABETES MELLITUS

REACTIONS (1)
  - BLADDER CANCER [None]
